FAERS Safety Report 17345716 (Version 1)
Quarter: 2020Q1

REPORT INFORMATION
  Report Type: Spontaneous
  Country: US (occurrence: US)
  Receive Date: 20200129
  Receipt Date: 20200129
  Transmission Date: 20200409
  Serious: Yes (Other)
  Sender: FDA-Public Use
  Company Number: NVSC2020US020070

PATIENT
  Age: 45 Year
  Sex: Female

DRUGS (1)
  1. EVEROLIMUS. [Suspect]
     Active Substance: EVEROLIMUS
     Indication: HEPATIC ATROPHY
     Dosage: UNK
     Route: 065

REACTIONS (5)
  - Acquired dysfibrinogenaemia [Recovering/Resolving]
  - Gastrointestinal haemorrhage [Recovering/Resolving]
  - Haemorrhage [Recovering/Resolving]
  - Product use in unapproved indication [Unknown]
  - Peroneal nerve palsy [Unknown]
